FAERS Safety Report 11006981 (Version 1)
Quarter: 2015Q2

REPORT INFORMATION
  Report Type: Spontaneous
  Country: None (occurrence: US)
  Receive Date: 20150409
  Receipt Date: 20150409
  Transmission Date: 20150821
  Serious: No
  Sender: FDA-Public Use
  Company Number: US-ALLERGAN-1500943US

PATIENT
  Age: 43 Year
  Sex: Female

DRUGS (2)
  1. LATISSE [Suspect]
     Active Substance: BIMATOPROST
     Indication: PRODUCT USED FOR UNKNOWN INDICATION
     Dosage: UNK
     Route: 047
  2. BUTERBUR [Concomitant]
     Indication: MIGRAINE
     Dosage: UNK

REACTIONS (4)
  - Expired product administered [Unknown]
  - Wrong technique in drug usage process [Unknown]
  - Ocular hyperaemia [Unknown]
  - Eye irritation [Unknown]
